FAERS Safety Report 21503958 (Version 2)
Quarter: 2022Q4

REPORT INFORMATION
  Report Type: Report from Study
  Country: US (occurrence: None)
  Receive Date: 20221025
  Receipt Date: 20221028
  Transmission Date: 20230113
  Serious: Yes (Hospitalization)
  Sender: FDA-Public Use
  Company Number: US-ROCHE-3203121

PATIENT
  Age: 74 Year
  Sex: Male
  Weight: 87 kg

DRUGS (6)
  1. PIRFENIDONE [Suspect]
     Active Substance: PIRFENIDONE
     Indication: Idiopathic pulmonary fibrosis
     Dosage: ON 17/OCT/2022, RECEIVED MOST RECENT DOSE OF PIRFENIDONE PRIOR TO SAE OF 801 MG.
     Route: 048
     Dates: start: 201806
  2. ASPIRIN [Concomitant]
     Active Substance: ASPIRIN
     Route: 048
     Dates: start: 20180205
  3. CHOLECALCIFEROL [Concomitant]
     Active Substance: CHOLECALCIFEROL
     Dosage: DOSE 4000 U
     Route: 048
     Dates: start: 20180501
  4. FLUTICASONE [Concomitant]
     Active Substance: FLUTICASONE
     Indication: Rhinitis
     Route: 045
     Dates: start: 20180205
  5. LISINOPRIL [Concomitant]
     Active Substance: LISINOPRIL
     Indication: Hypertension
     Route: 048
     Dates: start: 20180205
  6. OMEPRAZOLE [Concomitant]
     Active Substance: OMEPRAZOLE
     Indication: Gastrooesophageal reflux disease
     Route: 048
     Dates: start: 20180501

REACTIONS (1)
  - Pneumonia [Not Recovered/Not Resolved]

NARRATIVE: CASE EVENT DATE: 20221017
